FAERS Safety Report 17779579 (Version 1)
Quarter: 2020Q2

REPORT INFORMATION
  Report Type: Spontaneous
  Country: US (occurrence: US)
  Receive Date: 20200513
  Receipt Date: 20200513
  Transmission Date: 20200714
  Serious: No
  Sender: FDA-Public Use
  Company Number: US-SA-2020SA120727

PATIENT

DRUGS (1)
  1. CEREZYME [Suspect]
     Active Substance: IMIGLUCERASE

REACTIONS (1)
  - Intercepted product preparation error [Unknown]
